FAERS Safety Report 8603322-3 (Version None)
Quarter: 2012Q3

REPORT INFORMATION
  Report Type: 
  Country: None (occurrence: None)
  Receive Date: 20120817
  Receipt Date: 20120814
  Transmission Date: 20120928
  Serious: Yes (Other)
  Sender: FDA-Public Use
  Company Number: PHHY2012NO026245

PATIENT
  Age: 64 Year
  Sex: Female

DRUGS (10)
  1. PANTOPRAZOLE [Concomitant]
     Route: 048
  2. LEVOTHYROXINE SODIUM [Concomitant]
     Indication: HYPERTHYROIDISM
     Route: 048
  3. SIMVASTATIN [Concomitant]
     Indication: HYPERCHOLESTEROLAEMIA
     Dosage: UNK UKN, UNK
  4. KEPPRA [Concomitant]
     Indication: EPILEPSY
     Dosage: UNK UKN, UNK
  5. LEVOTHYROXINE SODIUM [Concomitant]
     Indication: HYPOTHYROIDISM
     Dosage: UNK UKN, UNK
  6. PANTOPRAZOLE [Concomitant]
     Indication: PROPHYLAXIS AGAINST GASTROINTESTINAL ULCER
     Dosage: UNK UKN, UNK
  7. IRBESARTAN AND HYDROCHLOROTHIAZIDE [Concomitant]
     Route: 048
  8. ZOLEDRONOC ACID [Suspect]
     Indication: OSTEOPOROSIS
     Route: 042
     Dates: start: 20120228
  9. IRBESARTAN AND HYDROCHLOROTHIAZIDE [Concomitant]
     Indication: HYPERTENSION
     Dosage: UNK UKN, UNK
  10. KEPPRA [Concomitant]
     Route: 048

REACTIONS (27)
  - DIARRHOEA [None]
  - GAIT DISTURBANCE [None]
  - MUSCULOSKELETAL PAIN [None]
  - QUALITY OF LIFE DECREASED [None]
  - PYREXIA [None]
  - MYALGIA [None]
  - NYSTAGMUS [None]
  - DEPRESSION [None]
  - SYNOVITIS [None]
  - TRISMUS [None]
  - PAIN [None]
  - MUSCLE SPASMS [None]
  - OSTEOARTHRITIS [None]
  - HEADACHE [None]
  - ARTHRALGIA [None]
  - OEDEMA PERIPHERAL [None]
  - FEELING ABNORMAL [None]
  - GINGIVAL DISORDER [None]
  - EMOTIONAL DISTRESS [None]
  - MALAISE [None]
  - BACK PAIN [None]
  - PAIN IN JAW [None]
  - DRY MOUTH [None]
  - ARTHRITIS INFECTIVE [None]
  - JOINT SWELLING [None]
  - INFLUENZA LIKE ILLNESS [None]
  - ANXIETY [None]
